FAERS Safety Report 19967603 (Version 1)
Quarter: 2021Q4

REPORT INFORMATION
  Report Type: Spontaneous
  Country: US (occurrence: US)
  Receive Date: 20211019
  Receipt Date: 20211019
  Transmission Date: 20220303
  Serious: No
  Sender: FDA-Public Use
  Company Number: US-UROGEN PHARMA LTD.-2021-UGN-000022

PATIENT
  Age: 42 Year
  Sex: Female

DRUGS (6)
  1. JELMYTO [Suspect]
     Active Substance: MITOMYCIN
     Indication: Transitional cell cancer of the renal pelvis and ureter
     Dosage: 16 MG, ONCE A WEEK
     Dates: start: 20210407, end: 20210407
  2. JELMYTO [Suspect]
     Active Substance: MITOMYCIN
     Dosage: 16 MG, ONCE A WEEK
     Dates: start: 20210414, end: 20210414
  3. JELMYTO [Suspect]
     Active Substance: MITOMYCIN
     Dosage: 16 MG, ONCE A WEEK
     Dates: start: 20210428, end: 20210428
  4. JELMYTO [Suspect]
     Active Substance: MITOMYCIN
     Dosage: 16 MG, ONCE A WEEK
     Dates: start: 20210505, end: 20210505
  5. JELMYTO [Suspect]
     Active Substance: MITOMYCIN
     Dosage: 16 MG, ONCE A WEEK
     Dates: start: 20210512, end: 20210512
  6. JELMYTO [Suspect]
     Active Substance: MITOMYCIN
     Dosage: 16 MG, ONCE A WEEK
     Dates: start: 20210519, end: 20210519

REACTIONS (9)
  - Abdominal discomfort [Recovered/Resolved]
  - Micturition urgency [Recovered/Resolved]
  - Pollakiuria [Recovered/Resolved]
  - Abdominal pain [Recovered/Resolved]
  - Nausea [Recovered/Resolved]
  - Pyrexia [Recovered/Resolved]
  - Chills [Recovered/Resolved]
  - Haematuria [Recovered/Resolved]
  - Procedural pain [Recovered/Resolved]

NARRATIVE: CASE EVENT DATE: 20210414
